FAERS Safety Report 10227825 (Version 1)
Quarter: 2014Q2

REPORT INFORMATION
  Report Type: Other
  Country: DE (occurrence: DE)
  Receive Date: 20140610
  Receipt Date: 20140610
  Transmission Date: 20141212
  Serious: Yes (Hospitalization)
  Sender: FDA-Public Use
  Company Number: DE-SUN PHARMACEUTICAL INDUSTRIES LTD-2014SUN01281

PATIENT
  Age: 73 Year
  Sex: Male

DRUGS (4)
  1. OLANZAPINE [Suspect]
     Indication: PRODUCT USED FOR UNKNOWN INDICATION
     Dosage: 20 MG, 1 DAY
     Route: 048
     Dates: start: 201308, end: 20140114
  2. ERGENYL [Concomitant]
     Dosage: 2100 MG, 1 DAY
     Route: 048
     Dates: start: 2006
  3. RAMIPRIL [Concomitant]
     Dosage: 10 MG, 1 DAY
     Route: 048
     Dates: start: 2011
  4. HYDROCHLOROTHIAZIDE [Concomitant]
     Dosage: 50 MG, 1DAY
     Route: 048
     Dates: start: 2011

REACTIONS (1)
  - Camptocormia [Recovered/Resolved]
